FAERS Safety Report 4797238-0 (Version None)
Quarter: 2005Q3

REPORT INFORMATION
  Report Type: 
  Country: None (occurrence: None)
  Receive Date: 20050916
  Receipt Date: 20041210
  Transmission Date: 20060218
  Serious: Yes (Other)
  Sender: FDA-Public Use
  Company Number: US-JNJFOC-20040700897

PATIENT
  Age: 59 Year
  Sex: Male

DRUGS (4)
  1. TOPAMAX [Suspect]
     Indication: DRUG THERAPY
     Dosage: 100 MG, 2 IN 1 DAY, ORAL; 25 MG, IN 1 DAY, ORAL; 50 MG, 2 IN 1 DAY, ORAL
     Route: 048
     Dates: start: 20011203
  2. LORAZEPAM [Concomitant]
  3. DEPAKOTE [Concomitant]
  4. ACETYLSALICYLIC ACID SRT [Concomitant]

REACTIONS (1)
  - NEPHROLITHIASIS [None]
